FAERS Safety Report 22088214 (Version 7)
Quarter: 2024Q1

REPORT INFORMATION
  Report Type: Report from Study
  Country: US (occurrence: US)
  Receive Date: 20230313
  Receipt Date: 20240223
  Transmission Date: 20240410
  Serious: No
  Sender: FDA-Public Use
  Company Number: US-002147023-NVSC2023US052317

PATIENT
  Age: 44 Year
  Sex: Female

DRUGS (6)
  1. KESIMPTA [Suspect]
     Active Substance: OFATUMUMAB
     Indication: Multiple sclerosis
     Dosage: UNK (DOSE: 20MG/0.4 ML)
     Route: 058
  2. KESIMPTA [Suspect]
     Active Substance: OFATUMUMAB
     Dosage: 20 MG (20MG/0.4ML), QMO (INJECT MONTHLY STARTING AT WEEK 4)
     Route: 058
  3. KESIMPTA [Suspect]
     Active Substance: OFATUMUMAB
     Dosage: 20 MG (20MG/0.4ML), QMO (INJECT MONTHLY STARTING AT WEEK 4)
     Route: 058
  4. KESIMPTA [Suspect]
     Active Substance: OFATUMUMAB
     Dosage: UNK
     Route: 058
     Dates: start: 20240212
  5. GABAPENTIN [Concomitant]
     Active Substance: GABAPENTIN
     Indication: Product used for unknown indication
     Dosage: UNK
     Route: 065
  6. CYCLOBENZAPRINE HYDROCHLORIDE [Concomitant]
     Active Substance: CYCLOBENZAPRINE HYDROCHLORIDE
     Indication: Product used for unknown indication
     Dosage: UNK
     Route: 065

REACTIONS (14)
  - Erythema [Unknown]
  - Peripheral swelling [Unknown]
  - Fatigue [Unknown]
  - Limb discomfort [Unknown]
  - Rhinorrhoea [Unknown]
  - Hypoaesthesia [Unknown]
  - Gait disturbance [Unknown]
  - Influenza like illness [Unknown]
  - Bacterial infection [Unknown]
  - Insomnia [Unknown]
  - Illness [Unknown]
  - Product storage error [Unknown]
  - Therapeutic product effect incomplete [Unknown]
  - Accidental exposure to product [Unknown]

NARRATIVE: CASE EVENT DATE: 20240212
